FAERS Safety Report 10576300 (Version 5)
Quarter: 2015Q1

REPORT INFORMATION
  Report Type: Report from Study
  Country: US (occurrence: US)
  Receive Date: 20141111
  Receipt Date: 20150312
  Transmission Date: 20150720
  Serious: Yes (Other)
  Sender: FDA-Public Use
  Company Number: US-SA-2014SA147850

PATIENT
  Age: 69 Year
  Sex: Female

DRUGS (13)
  1. COQ10 [Concomitant]
     Active Substance: UBIDECARENONE
  2. MAGNESIUM [Concomitant]
     Active Substance: MAGNESIUM
  3. ALL OTHER THERAPEUTIC PRODUCTS [Concomitant]
     Active Substance: UNSPECIFIED INGREDIENT
  4. LIDODERM [Concomitant]
     Active Substance: LIDOCAINE
  5. KYNAMRO [Suspect]
     Active Substance: MIPOMERSEN SODIUM
     Indication: TYPE IIA HYPERLIPIDAEMIA
     Dosage: SELF ADMINISTERED
     Route: 058
     Dates: start: 20141021, end: 201501
  6. KYNAMRO [Suspect]
     Active Substance: MIPOMERSEN SODIUM
     Indication: TYPE IIA HYPERLIPIDAEMIA
     Dosage: SELF ADMINISTERED
     Route: 058
     Dates: start: 20141021, end: 201501
  7. ELAVIL [Concomitant]
     Active Substance: AMITRIPTYLINE HYDROCHLORIDE
     Indication: NEURALGIA
  8. NASONEX [Concomitant]
     Active Substance: MOMETASONE FUROATE
     Indication: HYPERSENSITIVITY
  9. AMBIEN CR [Concomitant]
     Active Substance: ZOLPIDEM TARTRATE
     Indication: TINNITUS
  10. ARMOUR THYROID [Concomitant]
     Active Substance: THYROID, PORCINE\THYROID, UNSPECIFIED
     Indication: HYPOTHYROIDISM
  11. AMLODIPINE [Concomitant]
     Active Substance: AMLODIPINE BESYLATE
     Indication: BLOOD PRESSURE
  12. NEXIUM [Concomitant]
     Active Substance: ESOMEPRAZOLE MAGNESIUM
     Dosage: FREQUENCY: SOMETIME
  13. RED YEAST RICE [Concomitant]
     Active Substance: DIETARY SUPPLEMENT

REACTIONS (21)
  - Injection site discolouration [Recovered/Resolved]
  - Erythema of eyelid [Unknown]
  - Hepatic enzyme increased [Recovering/Resolving]
  - Dry mouth [Unknown]
  - Eye pruritus [Unknown]
  - Pruritus [Not Recovered/Not Resolved]
  - Injection site pain [Unknown]
  - Ageusia [Unknown]
  - Back pain [Unknown]
  - Chills [Not Recovered/Not Resolved]
  - Adverse reaction [Not Recovered/Not Resolved]
  - Urinary tract infection [Unknown]
  - Pyrexia [Unknown]
  - Injection site swelling [Recovered/Resolved]
  - Pain [Not Recovered/Not Resolved]
  - Diarrhoea [Unknown]
  - Abdominal pain upper [Unknown]
  - Influenza like illness [Not Recovered/Not Resolved]
  - Headache [Not Recovered/Not Resolved]
  - Hypertension [Not Recovered/Not Resolved]
  - Pain in extremity [Not Recovered/Not Resolved]

NARRATIVE: CASE EVENT DATE: 2014
